FAERS Safety Report 5575285-9 (Version None)
Quarter: 2007Q4

REPORT INFORMATION
  Report Type: 
  Country: None (occurrence: None)
  Receive Date: 20071227
  Receipt Date: 20071215
  Transmission Date: 20080405
  Serious: Yes (Other)
  Sender: FDA-Public Use
  Company Number: US-PFIZER INC-2007105545

PATIENT
  Age: 60 Year
  Sex: Female
  Weight: 65.8 kg

DRUGS (6)
  1. XANAX [Suspect]
     Dates: start: 20070101, end: 20070101
  2. NORVASC [Suspect]
     Indication: HYPERTENSION
  3. CLONIDINE [Suspect]
     Dates: start: 20070101, end: 20070101
  4. LEXAPRO [Suspect]
     Dates: start: 20070101, end: 20070101
  5. VALIUM [Concomitant]
  6. LIBRIUM [Concomitant]

REACTIONS (9)
  - ALCOHOL ABUSE [None]
  - BLOOD PRESSURE DECREASED [None]
  - HEART RATE INCREASED [None]
  - HYPERTENSION [None]
  - NERVOUSNESS [None]
  - PANIC REACTION [None]
  - PRESYNCOPE [None]
  - SEDATION [None]
  - UNEVALUABLE EVENT [None]
